FAERS Safety Report 25445838 (Version 1)
Quarter: 2025Q2

REPORT INFORMATION
  Report Type: Spontaneous
  Country: CN (occurrence: CN)
  Receive Date: 20250617
  Receipt Date: 20250617
  Transmission Date: 20250717
  Serious: Yes (Hospitalization)
  Sender: BAYER HEALTHCARE LLC
  Company Number: CN-BAYER-2025A080192

PATIENT
  Age: 62 Year
  Sex: Male

DRUGS (1)
  1. LORATADINE [Suspect]
     Active Substance: LORATADINE
     Indication: Rash pruritic
     Dosage: 10 MG, QD
     Route: 048
     Dates: start: 20250415, end: 20250505

REACTIONS (5)
  - Hepatic function abnormal [Recovering/Resolving]
  - Asthenia [Recovering/Resolving]
  - Musculoskeletal chest pain [Recovering/Resolving]
  - Chromaturia [Recovering/Resolving]
  - Dysgeusia [Recovering/Resolving]

NARRATIVE: CASE EVENT DATE: 20250505
